FAERS Safety Report 8136474-2 (Version None)
Quarter: 2012Q1

REPORT INFORMATION
  Report Type: 
  Country: None (occurrence: None)
  Receive Date: 20120214
  Receipt Date: 20120205
  Transmission Date: 20120608
  Serious: Yes (Other)
  Sender: FDA-Public Use
  Company Number: CA-ELI_LILLY_AND_COMPANY-CA201202001606

PATIENT
  Age: 68 Year
  Sex: Female

DRUGS (13)
  1. FLEXERIL [Concomitant]
  2. VITAMIN D [Concomitant]
  3. FORTEO [Suspect]
     Indication: OSTEOPOROSIS
     Dosage: 20 UG, QD
     Route: 058
     Dates: start: 20110920, end: 20120109
  4. NAPROSYN [Concomitant]
  5. PANTOPRAZOLE [Concomitant]
  6. PERCOCET [Concomitant]
  7. SPIRIVA [Concomitant]
  8. SCOPOLAMINE [Concomitant]
  9. LASIX [Concomitant]
  10. ATIVAN [Concomitant]
  11. MOTILIUM [Concomitant]
  12. SYNTHROID [Concomitant]
  13. POTASSIUM [Concomitant]

REACTIONS (1)
  - FOOT OPERATION [None]
